FAERS Safety Report 13302664 (Version 4)
Quarter: 2017Q2

REPORT INFORMATION
  Report Type: Spontaneous
  Country: NO (occurrence: NO)
  Receive Date: 20170307
  Receipt Date: 20170411
  Transmission Date: 20170830
  Serious: Yes (Life-Threatening, Hospitalization)
  Sender: FDA-Public Use
  Company Number: NO-SA-2017SA034170

PATIENT
  Age: 58 Year
  Sex: Male

DRUGS (17)
  1. LORATADINE. [Concomitant]
     Active Substance: LORATADINE
     Indication: HYPERSENSITIVITY
     Route: 048
  2. FAMPYRA [Concomitant]
     Active Substance: DALFAMPRIDINE
     Indication: MULTIPLE SCLEROSIS
     Route: 048
     Dates: start: 20120404
  3. BACTRIM [Concomitant]
     Active Substance: SULFAMETHOXAZOLE\TRIMETHOPRIM
     Indication: TUBULOINTERSTITIAL NEPHRITIS
     Route: 048
     Dates: start: 20170103, end: 20170105
  4. VITAMIN D3 [Concomitant]
     Active Substance: CHOLECALCIFEROL
     Indication: VITAMIN D DECREASED
     Route: 048
  5. SATIVEX [Concomitant]
     Active Substance: NABIXIMOLS
     Indication: MUSCLE SPASTICITY
     Dosage: SPRAY
     Route: 048
     Dates: start: 20131020
  6. GENTAMICIN. [Concomitant]
     Active Substance: GENTAMICIN
     Indication: TUBULOINTERSTITIAL NEPHRITIS
     Route: 042
     Dates: start: 20170105, end: 20170106
  7. PARACET [Concomitant]
     Active Substance: ACETAMINOPHEN
     Dosage: UPTO 4 TABLETS DAILY
     Route: 048
  8. RIFINAH [Concomitant]
     Active Substance: ISONIAZID\RIFAMPIN
     Indication: ANTIBIOTIC PROPHYLAXIS
     Dosage: 600 MG DAILY FOR THE FIRST 14 DAYS
     Route: 048
     Dates: start: 20160712, end: 20161012
  9. ASA [Concomitant]
     Active Substance: ASPIRIN
  10. STESOLID [Concomitant]
     Active Substance: DIAZEPAM
     Indication: MUSCLE SPASMS
     Route: 048
  11. FOLIC ACID. [Concomitant]
     Active Substance: FOLIC ACID
     Indication: FOLATE DEFICIENCY
     Dosage: EXACT DOSAGE UNKNOWN.
     Route: 048
     Dates: start: 201512
  12. ALBYL-E [Concomitant]
     Active Substance: ASPIRIN\MAGNESIUM OXIDE
     Indication: PROPHYLAXIS
     Route: 048
     Dates: start: 2011, end: 201702
  13. SOMAC [Concomitant]
     Active Substance: PANTOPRAZOLE SODIUM
     Dosage: 1 X DAILY
     Route: 048
  14. COLECALCIFEROL [Concomitant]
     Active Substance: CHOLECALCIFEROL
     Indication: VITAMIN D DECREASED
     Route: 048
  15. LEMTRADA [Suspect]
     Active Substance: ALEMTUZUMAB
     Indication: MULTIPLE SCLEROSIS
     Route: 041
     Dates: start: 20160822, end: 20160826
  16. ATORVASTATIN [Concomitant]
     Active Substance: ATORVASTATIN
     Indication: HYPERCHOLESTEROLAEMIA
     Route: 048
     Dates: start: 2011
  17. AMPICILLIN [Concomitant]
     Active Substance: AMPICILLIN
     Indication: TUBULOINTERSTITIAL NEPHRITIS
     Route: 042
     Dates: start: 20170105, end: 20170110

REACTIONS (12)
  - Gingival bleeding [Recovered/Resolved]
  - Viral upper respiratory tract infection [Unknown]
  - Thrombosis [Unknown]
  - Blood blister [Recovering/Resolving]
  - Rash macular [Unknown]
  - Oropharyngeal pain [Unknown]
  - Petechiae [Recovering/Resolving]
  - Contusion [Unknown]
  - Tubulointerstitial nephritis [Unknown]
  - Urinary tract infection [Unknown]
  - Immune thrombocytopenic purpura [Recovering/Resolving]
  - Skin haemorrhage [Recovering/Resolving]

NARRATIVE: CASE EVENT DATE: 20170103
